FAERS Safety Report 24378010 (Version 1)
Quarter: 2024Q3

REPORT INFORMATION
  Report Type: Spontaneous
  Country: US (occurrence: US)
  Receive Date: 20240930
  Receipt Date: 20240930
  Transmission Date: 20241016
  Serious: No
  Sender: IPSEN
  Company Number: US-IPSEN Group, Research and Development-2024-18828

PATIENT
  Age: 68 Year
  Sex: Female
  Weight: 56.69 kg

DRUGS (16)
  1. TAZVERIK [Suspect]
     Active Substance: TAZEMETOSTAT HYDROBROMIDE
     Indication: Follicular lymphoma stage II
     Route: 048
     Dates: start: 202204
  2. CLIMARA PRO PATCH [Concomitant]
     Dosage: PATCH
  3. DICLOFENAC [Concomitant]
     Active Substance: DICLOFENAC
  4. LUTEIN-ZEAXANTHIN [Concomitant]
  5. MELOXICAM [Concomitant]
     Active Substance: MELOXICAM
  6. FISH OIL\OMEGA-3 FATTY ACIDS [Concomitant]
     Active Substance: FISH OIL\OMEGA-3 FATTY ACIDS
  7. OXYCODONE [Concomitant]
     Active Substance: OXYCODONE
  8. SUMATRIPTAN [Concomitant]
     Active Substance: SUMATRIPTAN\SUMATRIPTAN SUCCINATE
  9. SYNTHROID [Concomitant]
     Active Substance: LEVOTHYROXINE SODIUM
  10. TRAMADOL [Concomitant]
     Active Substance: TRAMADOL
  11. VALACYCLOVIR [Concomitant]
     Active Substance: VALACYCLOVIR HYDROCHLORIDE
  12. VITAMIN B12 [Concomitant]
     Active Substance: CYANOCOBALAMIN
  13. VITAMIN B2 [Concomitant]
     Active Substance: RIBOFLAVIN
  14. VITAMIN D3 [Concomitant]
     Active Substance: CHOLECALCIFEROL
  15. VITAMIN E [Concomitant]
     Active Substance: .ALPHA.-TOCOPHEROL
  16. BUPROPION [Concomitant]
     Active Substance: BUPROPION

REACTIONS (2)
  - Gingival recession [Recovering/Resolving]
  - Product dose omission issue [Unknown]

NARRATIVE: CASE EVENT DATE: 20240101
